FAERS Safety Report 9695383 (Version 2)
Quarter: 2013Q4

REPORT INFORMATION
  Report Type: Spontaneous
  Country: NL (occurrence: NL)
  Receive Date: 20131119
  Receipt Date: 20131206
  Transmission Date: 20140711
  Serious: Yes (Hospitalization, Other)
  Sender: FDA-Public Use
  Company Number: NL-AMGEN-NLDSP2013080827

PATIENT
  Age: 69 Year
  Sex: Female

DRUGS (2)
  1. NEULASTA [Suspect]
     Indication: PRODUCT USED FOR UNKNOWN INDICATION
     Dosage: 6 MG, VARIES
     Route: 058
     Dates: start: 20131112
  2. CHEMOTHERAPEUTICS [Concomitant]
     Dosage: UNK

REACTIONS (9)
  - Dizziness [Unknown]
  - Breast discomfort [Unknown]
  - Anxiety [Unknown]
  - Loss of consciousness [Unknown]
  - Blood pressure abnormal [Unknown]
  - Drug intolerance [Unknown]
  - Food intolerance [Unknown]
  - Malaise [Unknown]
  - Hypersensitivity [Unknown]
